FAERS Safety Report 14309445 (Version 2)
Quarter: 2018Q3

REPORT INFORMATION
  Report Type: Spontaneous
  Country: IT (occurrence: IT)
  Receive Date: 20171220
  Receipt Date: 20180829
  Transmission Date: 20181010
  Serious: Yes (Death)
  Sender: FDA-Public Use
  Company Number: IT-TEVA-2017-IT-837844

PATIENT
  Age: 73 Year
  Sex: Male

DRUGS (1)
  1. RISPERDAL [Suspect]
     Active Substance: RISPERIDONE
     Indication: SCHIZOPHRENIA
     Route: 065
     Dates: start: 20170102, end: 20170402

REACTIONS (4)
  - Hypotension [Fatal]
  - Atrial fibrillation [Fatal]
  - Acute kidney injury [Fatal]
  - Rhabdomyolysis [Fatal]
